FAERS Safety Report 5314999-2 (Version None)
Quarter: 2007Q2

REPORT INFORMATION
  Report Type: 
  Country: None (occurrence: None)
  Receive Date: 20070502
  Receipt Date: 20070423
  Transmission Date: 20071010
  Serious: Yes (Other)
  Sender: FDA-Public Use
  Company Number: US-GENENTECH-240427

PATIENT
  Sex: Male
  Weight: 66.8 kg

DRUGS (5)
  1. BEVACIZUMAB [Suspect]
     Indication: COLORECTAL CANCER METASTATIC
     Dosage: 5 MG/KG, Q2W
     Route: 042
     Dates: start: 20070403
  2. OXALIPLATIN [Suspect]
     Indication: COLORECTAL CANCER METASTATIC
     Dosage: 85 MG/M2, Q2W
     Route: 042
     Dates: start: 20070403
  3. FLUOROURACIL [Suspect]
     Indication: COLORECTAL CANCER METASTATIC
     Dosage: 2400 MG/M2, UNK
     Route: 042
     Dates: start: 20070403
  4. LEUCOVORIN CALCIUM [Suspect]
     Indication: COLORECTAL CANCER METASTATIC
     Dosage: 200 MG/M2, Q2W
     Route: 042
     Dates: start: 20070403
  5. CALCIUM NOS/MAGNESIUM NOS [Suspect]
     Indication: COLORECTAL CANCER METASTATIC
     Dosage: 1 UNIT, Q2W
     Route: 042
     Dates: start: 20070403

REACTIONS (4)
  - EROSIVE OESOPHAGITIS [None]
  - HAEMATEMESIS [None]
  - HAEMATOCHEZIA [None]
  - HICCUPS [None]
